FAERS Safety Report 21553932 (Version 2)
Quarter: 2022Q4

REPORT INFORMATION
  Report Type: Report from Study
  Country: US (occurrence: US)
  Receive Date: 20221104
  Receipt Date: 20221210
  Transmission Date: 20230113
  Serious: No
  Sender: FDA-Public Use
  Company Number: US-ABBVIE-4135647

PATIENT
  Sex: Female

DRUGS (1)
  1. HUMIRA [Suspect]
     Active Substance: ADALIMUMAB
     Indication: Crohn^s disease
     Dosage: CITRATE FREE
     Route: 058

REACTIONS (8)
  - Affect lability [Recovered/Resolved]
  - Mental disorder [Recovered/Resolved]
  - Crying [Unknown]
  - Anger [Unknown]
  - Acne [Not Recovered/Not Resolved]
  - Frustration tolerance decreased [Unknown]
  - Anxiety [Unknown]
  - Depression [Unknown]
